FAERS Safety Report 6373663-1 (Version None)
Quarter: 2009Q3

REPORT INFORMATION
  Report Type: 
  Country: None (occurrence: None)
  Receive Date: 20090924
  Receipt Date: 20090911
  Transmission Date: 20100115
  Serious: Yes (Hospitalization)
  Sender: FDA-Public Use
  Company Number: US-ROCHE-644388

PATIENT
  Sex: Male

DRUGS (8)
  1. PEGASYS [Suspect]
     Indication: HEPATITIS C
     Route: 058
     Dates: start: 20090514
  2. COPEGUS [Suspect]
     Indication: HEPATITIS C
     Route: 048
     Dates: start: 20090514
  3. ATIVAN [Concomitant]
  4. SEROQUEL [Concomitant]
  5. PLEXONAL [Concomitant]
  6. SENNA-S [Concomitant]
  7. OXYCONTIN [Concomitant]
  8. NAPROSYN [Concomitant]

REACTIONS (1)
  - DEEP VEIN THROMBOSIS [None]
